FAERS Safety Report 9521884 (Version 4)
Quarter: 2013Q4

REPORT INFORMATION
  Report Type: Spontaneous
  Country: US (occurrence: US)
  Receive Date: 20130913
  Receipt Date: 20131008
  Transmission Date: 20140711
  Serious: Yes (Other)
  Sender: FDA-Public Use
  Company Number: PHEH2013US017157

PATIENT
  Age: 32 Year
  Sex: Male

DRUGS (4)
  1. GILENYA [Suspect]
     Indication: MULTIPLE SCLEROSIS
     Dosage: 0.5 MG, QD
     Route: 048
     Dates: start: 20130605, end: 20130812
  2. SERTRALINE [Concomitant]
     Indication: DEPRESSION
     Dosage: 50 MG, QD
     Route: 048
     Dates: start: 20130605
  3. SERTRALINE [Concomitant]
     Dosage: 75 MG, QD
     Dates: start: 20130711
  4. VITAMIN D [Concomitant]
     Dosage: 1000 U, UNK
     Route: 048

REACTIONS (11)
  - Convulsion [Recovered/Resolved]
  - Musculoskeletal stiffness [Unknown]
  - Muscle rigidity [Unknown]
  - Dyskinesia [Unknown]
  - Muscle spasms [Unknown]
  - Partial seizures [Unknown]
  - Limb deformity [Unknown]
  - Joint stiffness [Unknown]
  - Electrocardiogram abnormal [Unknown]
  - Lymphocyte count decreased [Recovered/Resolved]
  - White blood cell count decreased [Recovered/Resolved]
